FAERS Safety Report 4348786-9 (Version None)
Quarter: 2004Q2

REPORT INFORMATION
  Report Type: 
  Country: None (occurrence: None)
  Receive Date: 20040423
  Receipt Date: 20040416
  Transmission Date: 20050107
  Serious: Yes (Death)
  Sender: FDA-Public Use
  Company Number: 2004026280

PATIENT
  Age: 45 Year
  Sex: Male

DRUGS (1)
  1. UNISOM NIGHTIME SKEEP AID TABLETS (DOXYLAMINE SUCCINATE) [Suspect]
     Indication: INSOMNIA
     Dosage: ^2 BOXES 2-MAR-04, ORAL
     Route: 048
     Dates: end: 20040325

REACTIONS (1)
  - OVERDOSE [None]
